FAERS Safety Report 6016352-5 (Version None)
Quarter: 2008Q4

REPORT INFORMATION
  Report Type: 
  Country: None (occurrence: None)
  Receive Date: 20081222
  Receipt Date: 20081212
  Transmission Date: 20090506
  Serious: Yes (Hospitalization)
  Sender: FDA-Public Use
  Company Number: US-JNJFOC-20081203851

PATIENT
  Sex: Male

DRUGS (3)
  1. DOXIL [Suspect]
     Indication: LEUKAEMIA PLASMACYTIC
     Dosage: 7 CYCLES IN TOTAL
     Route: 042
  2. VELCADE [Suspect]
     Indication: LEUKAEMIA PLASMACYTIC
     Dosage: 7 CYCLES TOTAL
     Route: 042
  3. DEXAMETHASONE [Concomitant]
     Indication: LEUKAEMIA PLASMACYTIC
     Route: 065

REACTIONS (2)
  - INTERSTITIAL LUNG DISEASE [None]
  - RESPIRATORY DISTRESS [None]
